FAERS Safety Report 14263623 (Version 2)
Quarter: 2017Q4

REPORT INFORMATION
  Report Type: Spontaneous
  Country: FR (occurrence: FR)
  Receive Date: 20171208
  Receipt Date: 20171221
  Transmission Date: 20180321
  Serious: Yes (Other)
  Sender: FDA-Public Use
  Company Number: FR-AUROBINDO-AUR-APL-2017-44114

PATIENT
  Age: 39 Year
  Sex: Female
  Weight: 66 kg

DRUGS (14)
  1. ETOPOSIDE. [Suspect]
     Active Substance: ETOPOSIDE
     Indication: HODGKIN^S DISEASE
     Dosage: UNK ()
     Route: 042
     Dates: start: 20140329, end: 20140329
  2. PREDNISONE. [Suspect]
     Active Substance: PREDNISONE
     Indication: HODGKIN^S DISEASE
     Dosage: UNK ()
     Route: 048
     Dates: start: 20140329, end: 20140329
  3. VINBLASTINE [Suspect]
     Active Substance: VINBLASTINE
     Indication: HODGKIN^S DISEASE
     Dosage: UNK ()
     Route: 042
     Dates: start: 20140821, end: 20140821
  4. NORVIR [Suspect]
     Active Substance: RITONAVIR
     Dosage: ()
     Route: 065
  5. NORVIR [Suspect]
     Active Substance: RITONAVIR
     Indication: HIV INFECTION
     Dosage: UNK
     Route: 065
  6. DOXORUBICIN [Suspect]
     Active Substance: DOXORUBICIN
     Indication: HODGKIN^S DISEASE
     Dosage: UNK
     Route: 042
     Dates: start: 20140329, end: 20140821
  7. BLEOMYCIN [Suspect]
     Active Substance: BLEOMYCIN SULFATE
     Indication: HODGKIN^S DISEASE
     Dosage: UNK ()
     Route: 042
     Dates: start: 20140329, end: 20140821
  8. PROCARBAZINE [Suspect]
     Active Substance: PROCARBAZINE
     Indication: HODGKIN^S DISEASE
     Dosage: UNK ()
     Route: 042
     Dates: start: 20140329, end: 20140329
  9. DOLUTEGRAVIR [Suspect]
     Active Substance: DOLUTEGRAVIR
     Indication: HIV INFECTION
     Dosage: 50 MG, BID
     Route: 048
     Dates: start: 20140328
  10. PREZISTA [Suspect]
     Active Substance: DARUNAVIR ETHANOLATE
     Dosage: ()
     Route: 065
  11. DACARBAZINE. [Suspect]
     Active Substance: DACARBAZINE
     Indication: HODGKIN^S DISEASE
     Dosage: UNK ()
     Route: 042
     Dates: start: 20140821, end: 20140821
  12. VINCRISTINE [Suspect]
     Active Substance: VINCRISTINE
     Indication: HODGKIN^S DISEASE
     Dosage: ()
     Route: 042
     Dates: start: 20140329, end: 20140329
  13. PREZISTA [Suspect]
     Active Substance: DARUNAVIR ETHANOLATE
     Indication: HIV INFECTION
     Dosage: UNK
     Route: 065
  14. CYCLOPHOSPHAMIDE. [Suspect]
     Active Substance: CYCLOPHOSPHAMIDE
     Indication: HODGKIN^S DISEASE
     Dosage: UNK ()
     Route: 042
     Dates: start: 20140329, end: 20140329

REACTIONS (1)
  - Febrile bone marrow aplasia [Recovered/Resolved]

NARRATIVE: CASE EVENT DATE: 20140404
